FAERS Safety Report 20068452 (Version 1)
Quarter: 2021Q4

REPORT INFORMATION
  Report Type: Spontaneous
  Country: US (occurrence: US)
  Receive Date: 20211115
  Receipt Date: 20211115
  Transmission Date: 20220303
  Serious: No
  Sender: FDA-Public Use
  Company Number: US-JNJFOC-20211103670

PATIENT

DRUGS (2)
  1. WOMENS ROGAINE UNSCENTED [Suspect]
     Active Substance: MINOXIDIL
     Indication: Product used for unknown indication
     Route: 065
  2. WOMENS ROGAINE [Suspect]
     Active Substance: MINOXIDIL
     Indication: Product used for unknown indication
     Route: 065

REACTIONS (2)
  - Seborrhoea [Unknown]
  - Incorrect product administration duration [Unknown]
